FAERS Safety Report 12285623 (Version 1)
Quarter: 2016Q2

REPORT INFORMATION
  Report Type: Report from Study
  Country: DE (occurrence: DE)
  Receive Date: 20160420
  Receipt Date: 20160420
  Transmission Date: 20160815
  Serious: Yes (Hospitalization)
  Sender: FDA-Public Use
  Company Number: DE-TEVA-587948GER

PATIENT
  Age: 47 Year
  Sex: Female

DRUGS (3)
  1. L-THYROXIN [Concomitant]
     Active Substance: LEVOTHYROXINE SODIUM
     Dosage: 100 MICROGRAM DAILY;
  2. PACLITAXEL. [Suspect]
     Active Substance: PACLITAXEL
     Indication: BREAST CANCER FEMALE
     Dosage: LAST DOSE PRIOR TO SAE: 11-AUG-2015
     Route: 042
     Dates: start: 20150505, end: 20150827
  3. MYOCET [Suspect]
     Active Substance: DOXORUBICIN
     Indication: BREAST CANCER FEMALE
     Dosage: LAST DOSE PRIOR TO SAE: 11-AUG-2015
     Route: 042
     Dates: start: 20150505, end: 20150827

REACTIONS (1)
  - Pneumonitis chemical [Recovered/Resolved]

NARRATIVE: CASE EVENT DATE: 20150819
